FAERS Safety Report 4979559-1 (Version None)
Quarter: 2006Q2

REPORT INFORMATION
  Report Type: 
  Country: None (occurrence: None)
  Receive Date: 20060421
  Receipt Date: 20060410
  Transmission Date: 20061013
  Serious: Yes (Death, Hospitalization)
  Sender: FDA-Public Use
  Company Number: FR-ROCHE-444021

PATIENT
  Age: 60 Year
  Sex: Female

DRUGS (1)
  1. XELODA [Suspect]
     Route: 048
     Dates: start: 20060124, end: 20060207

REACTIONS (4)
  - ASTHENIA [None]
  - DIARRHOEA [None]
  - PANCYTOPENIA [None]
  - STOMATITIS [None]
